FAERS Safety Report 9373472 (Version 2)
Quarter: 2013Q3

REPORT INFORMATION
  Report Type: Report from Study
  Country: US (occurrence: US)
  Receive Date: 20130627
  Receipt Date: 20130708
  Transmission Date: 20140515
  Serious: Yes (Hospitalization)
  Sender: FDA-Public Use
  Company Number: US-ABBOTT-13P-163-1107369-00

PATIENT
  Age: 46 Year
  Sex: Female
  Weight: 81.72 kg

DRUGS (6)
  1. HUMIRA [Suspect]
     Indication: CROHN^S DISEASE
     Dates: start: 201201, end: 201206
  2. SYNTHROID [Concomitant]
     Indication: PRODUCT USED FOR UNKNOWN INDICATION
  3. METHOTREXATE [Concomitant]
     Indication: PRODUCT USED FOR UNKNOWN INDICATION
  4. CYMBALTA [Concomitant]
     Indication: PRODUCT USED FOR UNKNOWN INDICATION
  5. PERCOCET [Concomitant]
     Indication: PRODUCT USED FOR UNKNOWN INDICATION
  6. ZANAFLEX [Concomitant]
     Indication: PRODUCT USED FOR UNKNOWN INDICATION

REACTIONS (9)
  - Transient ischaemic attack [Recovered/Resolved with Sequelae]
  - Transient ischaemic attack [Recovered/Resolved with Sequelae]
  - Hemiparesis [Recovered/Resolved with Sequelae]
  - Amnesia [Not Recovered/Not Resolved]
  - Dizziness [Not Recovered/Not Resolved]
  - Orthostatic hypotension [Not Recovered/Not Resolved]
  - Loss of consciousness [Not Recovered/Not Resolved]
  - Blood pressure increased [Not Recovered/Not Resolved]
  - Foot fracture [Not Recovered/Not Resolved]
